FAERS Safety Report 6024127-6 (Version None)
Quarter: 2008Q4

REPORT INFORMATION
  Report Type: 
  Country: None (occurrence: None)
  Receive Date: 20081224
  Receipt Date: 20081216
  Transmission Date: 20090506
  Serious: Yes (Hospitalization)
  Sender: FDA-Public Use
  Company Number: TCI2008A06277

PATIENT
  Age: 9 Decade
  Sex: Male

DRUGS (8)
  1. ACTOS [Suspect]
     Indication: DIABETES MELLITUS
     Dosage: 30 MG (30 MG, 1 D), PER ORAL :15 MG (15 MG, 1 D) PER ORAL : PER ORAL
     Route: 048
     Dates: end: 20081212
  2. ACTOS [Suspect]
     Indication: DIABETES MELLITUS
     Dosage: 30 MG (30 MG, 1 D), PER ORAL :15 MG (15 MG, 1 D) PER ORAL : PER ORAL
     Route: 048
     Dates: start: 20081213
  3. AMARYL [Concomitant]
  4. GLUFAST (MITIGLINIDE CALCIUM HYDRATE) [Concomitant]
  5. BISOPROLOL FUMARATE [Concomitant]
  6. SIGMART (NICORDANIL) [Concomitant]
  7. BEZATOL SR (BEZAFIBRATE) [Concomitant]
  8. ISOSORBIDE DINITRATE [Concomitant]

REACTIONS (8)
  - ABDOMINAL DISCOMFORT [None]
  - ABDOMINAL DISTENSION [None]
  - BLOOD UREA INCREASED [None]
  - CEREBRAL INFARCTION [None]
  - CHEST DISCOMFORT [None]
  - OEDEMA PERIPHERAL [None]
  - POLLAKIURIA [None]
  - PRURITUS [None]
